FAERS Safety Report 4811278-4 (Version None)
Quarter: 2005Q4

REPORT INFORMATION
  Report Type: 
  Country: None (occurrence: None)
  Receive Date: 20051027
  Receipt Date: 20051012
  Transmission Date: 20060501
  Serious: Yes (Other)
  Sender: FDA-Public Use
  Company Number: SG-MERCK-0510SGP00003

PATIENT
  Age: 21 Year
  Sex: Female

DRUGS (2)
  1. CLINORIL [Suspect]
     Indication: ADENOMATOUS POLYPOSIS COLI
     Route: 048
  2. TAMOXIFEN CITRATE [Suspect]
     Indication: ADENOMATOUS POLYPOSIS COLI
     Route: 048

REACTIONS (2)
  - DESMOID TUMOUR [None]
  - OBSTRUCTIVE UROPATHY [None]
